FAERS Safety Report 9353436 (Version 1)
Quarter: 2013Q2

REPORT INFORMATION
  Report Type: Spontaneous
  Country: US (occurrence: None)
  Receive Date: 20130617
  Receipt Date: 20130617
  Transmission Date: 20140414
  Serious: Yes (Hospitalization)
  Sender: FDA-Public Use
  Company Number: None

PATIENT
  Age: 53 Year
  Sex: Male
  Weight: 98.4 kg

DRUGS (2)
  1. CARBOPLATIN [Suspect]
     Dates: end: 20130529
  2. TOPOTECAN [Suspect]
     Dates: end: 20130529

REACTIONS (3)
  - Diarrhoea [None]
  - Ileus [None]
  - Caecitis [None]
